FAERS Safety Report 5755660-X (Version None)
Quarter: 2008Q2

REPORT INFORMATION
  Report Type: 
  Country: None (occurrence: None)
  Receive Date: 20080530
  Receipt Date: 20080530
  Transmission Date: 20081010
  Serious: Yes (Death, Hospitalization)
  Sender: FDA-Public Use
  Company Number: None

PATIENT
  Sex: Female
  Weight: 35 kg

DRUGS (10)
  1. LENALIDOMIDE [Suspect]
     Indication: HODGKIN'S DISEASE
     Dosage: 25MG/DAY  PO
     Route: 048
     Dates: start: 20071106
  2. NEXIUM [Concomitant]
  3. ZOLOFT [Concomitant]
  4. VORICONAZOLE [Concomitant]
  5. ZOFRAN [Concomitant]
  6. BACTRIM [Concomitant]
  7. VICODIN [Concomitant]
  8. ACYCLOVIR SODIUM [Concomitant]
  9. AMICAR [Concomitant]
  10. FENTANYL [Concomitant]

REACTIONS (5)
  - DYSPNOEA [None]
  - HYPOXIA [None]
  - PULMONARY MASS [None]
  - RESPIRATORY DISTRESS [None]
  - UNRESPONSIVE TO STIMULI [None]
